FAERS Safety Report 8492896-1 (Version None)
Quarter: 2012Q3

REPORT INFORMATION
  Report Type: 
  Country: None (occurrence: None)
  Receive Date: 20120706
  Receipt Date: 20100209
  Transmission Date: 20120928
  Serious: Yes (Hospitalization)
  Sender: FDA-Public Use
  Company Number: US-GLAXOSMITHKLINE-A0843991A

PATIENT
  Age: 52 Year
  Sex: Female
  Weight: 87.7 kg

DRUGS (5)
  1. CYMBALTA [Concomitant]
  2. PREMARIN [Concomitant]
  3. BENICAR [Concomitant]
  4. AVANDIA [Suspect]
     Indication: TYPE 2 DIABETES MELLITUS
     Dosage: 4MG PER DAY
     Route: 048
     Dates: start: 20060901, end: 20070201
  5. CRESTOR [Concomitant]

REACTIONS (4)
  - CHEST PAIN [None]
  - OEDEMA [None]
  - SLEEP APNOEA SYNDROME [None]
  - ADVERSE EVENT [None]
